FAERS Safety Report 7888298-9 (Version None)
Quarter: 2011Q4

REPORT INFORMATION
  Report Type: 
  Country: None (occurrence: None)
  Receive Date: 20111103
  Receipt Date: 20111101
  Transmission Date: 20120403
  Serious: Yes (Other)
  Sender: FDA-Public Use
  Company Number: US-BAYER-2011-086488

PATIENT
  Age: 59 Year
  Sex: Female

DRUGS (2)
  1. NEXAVAR [Suspect]
     Dosage: 200 MG, BID
     Dates: start: 20111001
  2. NEXAVAR [Suspect]
     Indication: RENAL CELL CARCINOMA
     Dosage: 400 MG, BID
     Route: 048
     Dates: start: 20110901

REACTIONS (22)
  - VULVOVAGINAL PRURITUS [None]
  - HYPERKERATOSIS [None]
  - DIARRHOEA [None]
  - ERYTHEMA [None]
  - RASH PAPULAR [None]
  - RASH [None]
  - VULVOVAGINAL MYCOTIC INFECTION [None]
  - ABASIA [None]
  - ALOPECIA [None]
  - DRY SKIN [None]
  - SKIN BURNING SENSATION [None]
  - PAIN OF SKIN [None]
  - BLISTER [None]
  - PRURITUS [None]
  - CHOLELITHIASIS [None]
  - VISION BLURRED [None]
  - ABDOMINAL PAIN UPPER [None]
  - FLATULENCE [None]
  - PAIN IN EXTREMITY [None]
  - RASH MACULAR [None]
  - HYPERAESTHESIA [None]
  - STOMATITIS [None]
